FAERS Safety Report 11045268 (Version 1)
Quarter: 2015Q2

REPORT INFORMATION
  Report Type: Spontaneous
  Country: US (occurrence: US)
  Receive Date: 20150417
  Receipt Date: 20150417
  Transmission Date: 20150821
  Serious: No
  Sender: FDA-Public Use
  Company Number: US-PFIZER INC-2015131173

PATIENT
  Sex: Female

DRUGS (4)
  1. MACRODANTIN [Suspect]
     Active Substance: NITROFURANTOIN
     Dosage: UNK
  2. RELAFEN [Suspect]
     Active Substance: NABUMETONE
  3. ZITHROMAX [Suspect]
     Active Substance: AZITHROMYCIN DIHYDRATE
     Dosage: UNK
  4. NULEV [Suspect]
     Active Substance: HYOSCYAMINE SULFATE

REACTIONS (1)
  - Drug hypersensitivity [Not Recovered/Not Resolved]
